FAERS Safety Report 11966266 (Version 8)
Quarter: 2017Q4

REPORT INFORMATION
  Report Type: Spontaneous
  Country: US (occurrence: US)
  Receive Date: 20160127
  Receipt Date: 20171019
  Transmission Date: 20180320
  Serious: Yes (Hospitalization)
  Sender: FDA-Public Use
  Company Number: US-ACTELION PHARMACEUTICALS US, INC.-A-US2016-130301

PATIENT
  Age: 45 Year
  Sex: Female
  Weight: 68.93 kg

DRUGS (3)
  1. ORENITRAM [Suspect]
     Active Substance: TREPROSTINIL
     Indication: PRODUCT USED FOR UNKNOWN INDICATION
     Route: 065
  2. SILDENAFIL. [Concomitant]
     Active Substance: SILDENAFIL
  3. TRACLEER [Suspect]
     Active Substance: BOSENTAN
     Indication: PULMONARY ARTERIAL HYPERTENSION
     Dosage: 62.5 MG, BID
     Route: 048
     Dates: start: 20130116

REACTIONS (12)
  - Chest pain [Recovered/Resolved]
  - Nausea [Unknown]
  - Dysphemia [Unknown]
  - Amnesia [Unknown]
  - Memory impairment [Unknown]
  - Heart rate increased [Recovered/Resolved]
  - Muscle spasms [Unknown]
  - Dyspnoea [Unknown]
  - Chest discomfort [Unknown]
  - Ageusia [Unknown]
  - Pneumonia [Unknown]
  - Glossodynia [Unknown]

NARRATIVE: CASE EVENT DATE: 20161101
